FAERS Safety Report 11039345 (Version 1)
Quarter: 2015Q2

REPORT INFORMATION
  Report Type: Spontaneous
  Country: GB (occurrence: GB)
  Receive Date: 20150416
  Receipt Date: 20150416
  Transmission Date: 20150821
  Serious: Yes (Death, Other)
  Sender: FDA-Public Use
  Company Number: GB-INCYTE CORPORATION-2015IN001545

PATIENT
  Age: 85 Year
  Sex: Female
  Weight: 46 kg

DRUGS (3)
  1. CLEXANE [Concomitant]
     Active Substance: ENOXAPARIN SODIUM
     Indication: THROMBOSIS PROPHYLAXIS
     Dosage: UNK
     Route: 065
  2. JAKAFI [Suspect]
     Active Substance: RUXOLITINIB
     Indication: MYELOFIBROSIS
     Dosage: 05 MG, QID (5 MG X 4 DOSES)
     Route: 048
     Dates: start: 20150220
  3. JAKAFI [Suspect]
     Active Substance: RUXOLITINIB
     Dosage: 15 MG, UNK
     Route: 048
     Dates: end: 20150303

REACTIONS (3)
  - Anaemia [Not Recovered/Not Resolved]
  - Subcutaneous haematoma [Not Recovered/Not Resolved]
  - Pain [Not Recovered/Not Resolved]

NARRATIVE: CASE EVENT DATE: 20150303
